FAERS Safety Report 6812373-0 (Version None)
Quarter: 2010Q2

REPORT INFORMATION
  Report Type: 
  Country: None (occurrence: None)
  Receive Date: 20100628
  Receipt Date: 20100615
  Transmission Date: 20101027
  Serious: Yes (Death)
  Sender: FDA-Public Use
  Company Number: 2007AL001721

PATIENT
  Age: 68 Year
  Sex: Female

DRUGS (6)
  1. MIRTAZAPINE TABLETS 30 MG (AMIDE) (MIRTAZAPINE) [Suspect]
     Indication: DEPRESSION
     Dosage: 30 MG;QD;PO
     Route: 048
     Dates: start: 20051207
  2. DULOXETINE HYDROCHLORIDE [Concomitant]
  3. TEMAZEPAM [Concomitant]
  4. EFFEXOR [Concomitant]
  5. MIRTAZAPINE [Concomitant]
  6. PREV MEDS [Concomitant]

REACTIONS (1)
  - SUBARACHNOID HAEMORRHAGE [None]
